FAERS Safety Report 4974647-8 (Version None)
Quarter: 2006Q2

REPORT INFORMATION
  Report Type: 
  Country: None (occurrence: None)
  Receive Date: 20060417
  Receipt Date: 20060220
  Transmission Date: 20061013
  Serious: Yes (Death, Hospitalization)
  Sender: FDA-Public Use
  Company Number: US-MERCK-0602USA04953

PATIENT
  Age: 50 Year
  Sex: Male
  Weight: 87 kg

DRUGS (14)
  1. VIOXX [Suspect]
     Indication: ARTHRALGIA
     Route: 048
     Dates: start: 20020201, end: 20030301
  2. LIPITOR [Concomitant]
     Route: 065
  3. PROSCAR [Concomitant]
     Route: 048
  4. ASPIRIN [Concomitant]
     Route: 048
  5. LISINOPRIL [Concomitant]
     Route: 048
  6. FLOMAX [Concomitant]
     Route: 065
  7. ATENOLOL [Concomitant]
     Route: 048
  8. PAXIL [Concomitant]
     Route: 065
  9. AGRYLIN [Concomitant]
     Route: 065
  10. DEPAKOTE [Concomitant]
     Route: 065
  11. NITROQUICK [Concomitant]
     Route: 065
  12. ADVAIR DISKUS 100/50 [Concomitant]
     Route: 065
  13. TYLENOL W/ CODEINE [Concomitant]
     Route: 065
  14. ISOSORBIDE [Concomitant]
     Route: 065

REACTIONS (4)
  - CORONARY ARTERY DISEASE [None]
  - HYPERTENSIVE HEART DISEASE [None]
  - MYOCARDIAL INFARCTION [None]
  - POLYCYTHAEMIA VERA [None]
